FAERS Safety Report 5607946-7 (Version None)
Quarter: 2008Q1

REPORT INFORMATION
  Report Type: 
  Country: None (occurrence: None)
  Receive Date: 20080130
  Receipt Date: 20080124
  Transmission Date: 20080703
  Serious: Yes (Hospitalization)
  Sender: FDA-Public Use
  Company Number: US-MERCK-0801USA05221

PATIENT
  Age: 65 Year
  Sex: Male

DRUGS (20)
  1. ZOCOR [Suspect]
     Route: 048
  2. ALBUTEROL [Concomitant]
     Route: 065
  3. AMIODARONE [Concomitant]
     Route: 048
  4. BUMETANIDE [Concomitant]
     Route: 048
  5. CALCIUM ACETATE [Concomitant]
     Route: 048
  6. CARVEDILOL [Concomitant]
     Route: 048
  7. DOCUSATE SODIUM [Concomitant]
     Route: 048
  8. EPOETIN ALFA [Concomitant]
     Route: 058
  9. FERROUS SULFATE [Concomitant]
     Route: 048
  10. PROPECIA [Concomitant]
     Route: 048
  11. INSULIN, ISOPHANE [Concomitant]
     Route: 058
  12. INSULIN LISPRO [Concomitant]
     Route: 058
  13. ISOSORBIDE DINITRATE [Concomitant]
     Route: 048
  14. METOLAZONE [Concomitant]
     Route: 048
  15. NATEGLINIDE [Concomitant]
     Route: 048
  16. PANTOPRAZOLE [Concomitant]
     Route: 048
  17. POTASSIUM CHLORIDE [Concomitant]
     Route: 048
  18. SEVELAMER HYDROCHLORIDE [Concomitant]
     Route: 048
  19. TAMSULOSIN HYDROCHLORIDE [Concomitant]
     Route: 048
  20. DOBUTAMINE [Suspect]
     Route: 041

REACTIONS (2)
  - CARDIAC FAILURE CONGESTIVE [None]
  - MYOCLONUS [None]
